FAERS Safety Report 5923013-7 (Version None)
Quarter: 2008Q4

REPORT INFORMATION
  Report Type: 
  Country: None (occurrence: None)
  Receive Date: 20081018
  Receipt Date: 20081006
  Transmission Date: 20090506
  Serious: Yes (Other)
  Sender: FDA-Public Use
  Company Number: US-PFIZER INC-2008066541

PATIENT
  Sex: Female
  Weight: 63 kg

DRUGS (15)
  1. RELPAX [Suspect]
     Indication: MIGRAINE
     Route: 048
     Dates: start: 19930101
  2. WELLBUTRIN SR [Suspect]
     Route: 048
  3. ZOLOFT [Concomitant]
  4. DETROL [Concomitant]
  5. IBUPROFEN [Concomitant]
  6. IMITREX [Concomitant]
  7. WELLBUTRIN SR [Concomitant]
  8. HERBAL NOS/MINERALS NOS [Concomitant]
  9. LAMICTAL [Concomitant]
  10. PROTONIX [Concomitant]
  11. PREDNICORT [Concomitant]
  12. KLONOPIN [Concomitant]
     Indication: INSOMNIA
  13. WELLBUTRIN XL [Concomitant]
  14. STADOL [Concomitant]
  15. PROZAC [Concomitant]

REACTIONS (22)
  - ABDOMINAL DISTENSION [None]
  - ABNORMAL BEHAVIOUR [None]
  - AMNESIA [None]
  - ANXIETY [None]
  - BIPOLAR DISORDER [None]
  - COUGH [None]
  - DEHYDRATION [None]
  - DEPRESSION [None]
  - DISTRACTIBILITY [None]
  - DYSPNOEA [None]
  - FATIGUE [None]
  - FLIGHT OF IDEAS [None]
  - GASTROOESOPHAGEAL REFLUX DISEASE [None]
  - HEADACHE [None]
  - HYPERTENSION [None]
  - INSOMNIA [None]
  - MUSCLE SPASMS [None]
  - NAUSEA [None]
  - TACHYCARDIA [None]
  - VOMITING [None]
  - WEIGHT INCREASED [None]
  - WHEEZING [None]
